FAERS Safety Report 18695388 (Version 1)
Quarter: 2021Q1

REPORT INFORMATION
  Report Type: Spontaneous
  Country: BE (occurrence: BE)
  Receive Date: 20210104
  Receipt Date: 20210104
  Transmission Date: 20210419
  Serious: Yes (Other)
  Sender: FDA-Public Use
  Company Number: NVSC2020BE344287

PATIENT
  Sex: Female

DRUGS (1)
  1. AMOXICLAV SANDOZ [Suspect]
     Active Substance: AMOXICILLIN\CLAVULANATE POTASSIUM
     Indication: PRODUCT USED FOR UNKNOWN INDICATION
     Dosage: 1 DF, TOTAL
     Route: 065

REACTIONS (4)
  - Dyspnoea [Recovering/Resolving]
  - Erythema [Recovering/Resolving]
  - Cyanosis [Recovering/Resolving]
  - Rash [Recovering/Resolving]
